FAERS Safety Report 9511017 (Version 1)
Quarter: 2013Q3

REPORT INFORMATION
  Report Type: Spontaneous
  Country: US (occurrence: None)
  Receive Date: 20130909
  Receipt Date: 20130909
  Transmission Date: 20140515
  Serious: Yes (Death)
  Sender: FDA-Public Use
  Company Number: None

PATIENT
  Age: 58 Year
  Sex: Female

DRUGS (1)
  1. TECFIDERA [Suspect]
     Indication: MULTIPLE SCLEROSIS
     Dosage: 240MG  BID  PO
     Route: 048
     Dates: start: 20130708

REACTIONS (4)
  - Flushing [None]
  - Influenza like illness [None]
  - Nausea [None]
  - Abdominal pain upper [None]
